FAERS Safety Report 25818598 (Version 1)
Quarter: 2025Q3

REPORT INFORMATION
  Report Type: Spontaneous
  Country: EU (occurrence: EU)
  Receive Date: 20250918
  Receipt Date: 20250918
  Transmission Date: 20251021
  Serious: Yes (Hospitalization)
  Sender: NOVARTIS
  Company Number: None

PATIENT
  Age: 73 Year
  Sex: Male

DRUGS (1)
  1. MEKINIST [Suspect]
     Active Substance: TRAMETINIB DIMETHYL SULFOXIDE
     Indication: Malignant melanoma
     Dosage: 2 MG, QD
     Route: 048
     Dates: start: 20200611, end: 20200805

REACTIONS (6)
  - Dropped head syndrome [Recovered/Resolved]
  - Confusional state [Recovered/Resolved]
  - Dyspnoea exertional [Recovered/Resolved]
  - Immune-mediated myositis [Recovered/Resolved]
  - Cardiac failure [Recovered/Resolved]
  - Immune-mediated myositis [Recovered/Resolved]

NARRATIVE: CASE EVENT DATE: 20200701
